FAERS Safety Report 8209532-1 (Version None)
Quarter: 2012Q1

REPORT INFORMATION
  Report Type: 
  Country: None (occurrence: None)
  Receive Date: 20120314
  Receipt Date: 20120313
  Transmission Date: 20120608
  Serious: Yes (Other)
  Sender: FDA-Public Use
  Company Number: JP-BAYER-2012-022152

PATIENT
  Age: 2 Year
  Sex: Male

DRUGS (2)
  1. IMMUNE GLOBULIN NOS [Concomitant]
     Indication: KAWASAKI'S DISEASE
     Route: 042
  2. ASPIRIN [Suspect]
     Indication: KAWASAKI'S DISEASE
     Dosage: UNK
     Route: 048

REACTIONS (1)
  - STEVENS-JOHNSON SYNDROME [None]
